FAERS Safety Report 4586156-9 (Version None)
Quarter: 2005Q1

REPORT INFORMATION
  Report Type: 
  Country: None (occurrence: None)
  Receive Date: 20050125
  Receipt Date: 20041019
  Transmission Date: 20050727
  Serious: No
  Sender: FDA-Public Use
  Company Number: USA041081512

PATIENT
  Age: 69 Year
  Sex: Female
  Weight: 59 kg

DRUGS (6)
  1. FORTEO [Suspect]
     Indication: OSTEOPOROSIS
     Dosage: 20 UG/L DAY
     Dates: start: 20030601
  2. CELEBREX [Concomitant]
  3. NORVASC [Concomitant]
  4. TIMOPTIC (TIMILOL MALEATE) [Concomitant]
  5. CALCIUM GLUCONATE [Concomitant]
  6. TUSSIONEX [Concomitant]

REACTIONS (4)
  - COUGH [None]
  - DRY MOUTH [None]
  - JOINT SWELLING [None]
  - LARYNGITIS [None]
